FAERS Safety Report 8989805 (Version 2)
Quarter: 2013Q2

REPORT INFORMATION
  Report Type: Report from Study
  Country: US (occurrence: US)
  Receive Date: 20121228
  Receipt Date: 20130408
  Transmission Date: 20140414
  Serious: Yes (Hospitalization, Congenital Anomaly, Other)
  Sender: FDA-Public Use
  Company Number: US-ABBOTT-12P-163-1025203-00

PATIENT
  Sex: Female

DRUGS (10)
  1. HUMIRA [Suspect]
     Indication: MATERNAL EXPOSURE TIMING UNSPECIFIED
     Route: 064
  2. HUMIRA [Suspect]
     Route: 063
  3. ACTHIB/DTP [Concomitant]
     Indication: IMMUNISATION
     Dosage: LEFT THIGH
     Route: 030
     Dates: start: 20130215, end: 20130215
  4. ACTHIB/DTP [Concomitant]
     Route: 030
     Dates: start: 20130215, end: 20130215
  5. DAPTACEL [Concomitant]
     Indication: IMMUNISATION
     Dosage: LEFT THIGH
     Route: 030
     Dates: start: 20130215, end: 20130215
  6. DAPTACEL [Concomitant]
     Route: 030
     Dates: start: 20130215, end: 20130215
  7. PREVNAR 13 [Concomitant]
     Indication: IMMUNISATION
     Dosage: RIGHT THIGH
     Route: 030
     Dates: start: 20130215, end: 20130215
  8. PREVNAR 13 [Concomitant]
     Route: 030
     Dates: start: 20130215, end: 20130215
  9. HEPATITIS B VACCINE [Concomitant]
     Indication: IMMUNISATION
     Dates: start: 20111022, end: 20111022
  10. FER IN SOL [Concomitant]
     Indication: PRODUCT USED FOR UNKNOWN INDICATION
     Route: 048

REACTIONS (12)
  - Low birth weight baby [Recovered/Resolved]
  - Premature baby [Recovered/Resolved]
  - Foetal growth restriction [Recovered/Resolved]
  - Umbilical cord short [Recovered/Resolved]
  - Foetal exposure during pregnancy [Unknown]
  - Eczema [Not Recovered/Not Resolved]
  - Encephalocele [Not Recovered/Not Resolved]
  - Plagiocephaly [Not Recovered/Not Resolved]
  - Foetal growth restriction [Unknown]
  - Hyperbilirubinaemia neonatal [Recovered/Resolved]
  - Sepsis neonatal [Recovered/Resolved]
  - Exposure during breast feeding [Unknown]
